FAERS Safety Report 5206787-2 (Version None)
Quarter: 2006Q4

REPORT INFORMATION
  Report Type: 
  Country: None (occurrence: None)
  Receive Date: 20061027
  Receipt Date: 20060713
  Transmission Date: 20070319
  Serious: No
  Sender: FDA-Public Use
  Company Number: 012342

PATIENT
  Age: 43 Year
  Sex: Female

DRUGS (9)
  1. PRIALT [Suspect]
     Indication: COMPLEX REGIONAL PAIN SYNDROME
     Dosage: 0.04 UG, ONCE/HOUR, INTRATHECAL; SEE IMAGE
     Route: 037
     Dates: start: 20060614
  2. PRIALT [Suspect]
     Indication: COMPLEX REGIONAL PAIN SYNDROME
     Dosage: 0.04 UG, ONCE/HOUR, INTRATHECAL; SEE IMAGE
     Route: 037
     Dates: start: 20060706
  3. CLONIDINE [Concomitant]
  4. MORPHINE SULFATE [Concomitant]
  5. OXYCODONE AND ACETAMINOPHEN [Concomitant]
  6. KLONOIN (CLONAZEPAM) [Concomitant]
  7. PROZAC [Concomitant]
  8. LASIX [Concomitant]
  9. LISINOPRIL [Concomitant]

REACTIONS (7)
  - DIZZINESS [None]
  - DRY MOUTH [None]
  - GAIT DISTURBANCE [None]
  - HALLUCINATION, AUDITORY [None]
  - HEADACHE [None]
  - HYPERTENSION [None]
  - SOMNOLENCE [None]
